FAERS Safety Report 6678796-8 (Version None)
Quarter: 2010Q2

REPORT INFORMATION
  Report Type: 
  Country: None (occurrence: None)
  Receive Date: 20100412
  Receipt Date: 20100412
  Transmission Date: 20101027
  Serious: Yes (Hospitalization)
  Sender: FDA-Public Use
  Company Number: None

PATIENT
  Sex: Female
  Weight: 45.9 kg

DRUGS (8)
  1. MEMANTINE HCL [Suspect]
     Dosage: 210 MG
  2. AMBIEN [Concomitant]
  3. DEXAMETAHSONE [Concomitant]
  4. DILAUDID [Concomitant]
  5. FENTANYL-75 [Concomitant]
  6. MYCELEX [Concomitant]
  7. ULTRAM [Concomitant]
  8. XANAX [Concomitant]

REACTIONS (5)
  - ABDOMINAL PAIN [None]
  - ARTHRALGIA [None]
  - METASTASES TO ADRENALS [None]
  - METASTASES TO BONE [None]
  - METASTASES TO LIVER [None]
